FAERS Safety Report 6593396-6 (Version None)
Quarter: 2010Q1

REPORT INFORMATION
  Report Type: 
  Country: None (occurrence: None)
  Receive Date: 20100222
  Receipt Date: 20090413
  Transmission Date: 20100710
  Serious: No
  Sender: FDA-Public Use
  Company Number: US-BRISTOL-MYERS SQUIBB COMPANY-14560833

PATIENT
  Age: 68 Year
  Sex: Female
  Weight: 63 kg

DRUGS (4)
  1. ORENCIA [Suspect]
     Indication: RHEUMATOID ARTHRITIS
     Dosage: NO. OF INF 1; 3 VIALS,750MG/DAY.
     Route: 042
     Dates: start: 20090324
  2. LISINOPRIL [Concomitant]
  3. ZIAC [Concomitant]
  4. DARVOCET [Concomitant]

REACTIONS (4)
  - FATIGUE [None]
  - INFUSION SITE PAIN [None]
  - INFUSION SITE SWELLING [None]
  - PARAESTHESIA [None]
